FAERS Safety Report 11003782 (Version 1)
Quarter: 2015Q2

REPORT INFORMATION
  Report Type: Spontaneous
  Country: KR (occurrence: KR)
  Receive Date: 20150409
  Receipt Date: 20150409
  Transmission Date: 20150821
  Serious: Yes (Hospitalization)
  Sender: FDA-Public Use
  Company Number: KR-BRISTOL-MYERS SQUIBB COMPANY-BMS-2015-021522

PATIENT
  Sex: Male
  Weight: 70 kg

DRUGS (1)
  1. GLUCOPHAGE XR [Suspect]
     Active Substance: METFORMIN HYDROCHLORIDE
     Indication: DIABETES MELLITUS
     Dosage: 1000 MG, UNK
     Route: 048
     Dates: start: 20150112

REACTIONS (5)
  - Wrong technique in drug usage process [Unknown]
  - Weight decreased [Unknown]
  - Herpes zoster [Unknown]
  - Fall [Unknown]
  - Hypotension [Unknown]
